FAERS Safety Report 5348438-2 (Version None)
Quarter: 2007Q2

REPORT INFORMATION
  Report Type: 
  Country: None (occurrence: None)
  Receive Date: 20070605
  Receipt Date: 20070523
  Transmission Date: 20071010
  Serious: Yes (Hospitalization)
  Sender: FDA-Public Use
  Company Number: 2005US001895

PATIENT
  Age: 24 Year
  Sex: Female
  Weight: 51.7 kg

DRUGS (1)
  1. PROGRAF [Suspect]
     Indication: PROPHYLAXIS AGAINST TRANSPLANT REJECTION
     Dates: start: 20050414

REACTIONS (2)
  - ORAL NEOPLASM [None]
  - TOOTH ABSCESS [None]
